FAERS Safety Report 8953671 (Version 2)
Quarter: 2013Q1

REPORT INFORMATION
  Report Type: Spontaneous
  Country: FR (occurrence: FR)
  Receive Date: 20121206
  Receipt Date: 20130117
  Transmission Date: 20140127
  Serious: Yes (Hospitalization)
  Sender: FDA-Public Use
  Company Number: FR-ASTRAZENECA-2012SE90926

PATIENT
  Age: 6 Month
  Sex: Male
  Weight: 5.5 kg

DRUGS (2)
  1. SYNAGIS [Suspect]
     Indication: BRONCHIAL DYSPLASIA
     Route: 030
     Dates: start: 20121112, end: 20121112
  2. SYNAGIS [Suspect]
     Indication: BRONCHIAL DYSPLASIA
     Route: 030
     Dates: start: 20121212, end: 20121212

REACTIONS (2)
  - Bronchopulmonary dysplasia [Recovered/Resolved]
  - Respiratory syncytial virus bronchiolitis [Recovered/Resolved]
